FAERS Safety Report 14823831 (Version 1)
Quarter: 2018Q2

REPORT INFORMATION
  Report Type: Spontaneous
  Country: DE (occurrence: DE)
  Receive Date: 20180428
  Receipt Date: 20180428
  Transmission Date: 20180711
  Serious: Yes (Hospitalization)
  Sender: FDA-Public Use
  Company Number: DE-AMCO LTD-E2B_00011430

PATIENT
  Age: 54 Year
  Sex: Female
  Weight: 60 kg

DRUGS (11)
  1. ATORVASTATIN [Concomitant]
     Active Substance: ATORVASTATIN
     Dosage: 80 MG, 0-0-1-0, TABLETTEN
     Route: 048
  2. VILANTEROL/UMECLIDINIUMBROMID [Concomitant]
     Dosage: 0-0-1-0, H?BE
     Route: 055
  3. RISPERIDON [Concomitant]
     Active Substance: RISPERIDONE
     Dosage: 1 MG, 1-0-1-0, TABLETTEN
     Route: 048
  4. LORAZEPAM. [Concomitant]
     Active Substance: LORAZEPAM
     Dosage: 0.5 MG, 2-1-1-2, TABLETTEN
     Route: 048
  5. TICAGRELOR. [Concomitant]
     Active Substance: TICAGRELOR
     Dosage: 90 MG, 1-0-1-0, TABLETTEN
     Route: 048
  6. PREDNISOLONE. [Suspect]
     Active Substance: PREDNISOLONE
     Dosage: 100 MG, 1-0-0-0, INJEKTIONS-/INFUSIONSL?SUNG
     Route: 042
  7. ACETYLSALICYLS?URE [Concomitant]
     Dosage: 100 MG, 1-0-0-0, TABLETTEN
     Route: 048
  8. QUETIAPIN [Concomitant]
     Active Substance: QUETIAPINE
     Dosage: 50 MG, 1-1-1-0, TABLETTEN
     Route: 048
  9. LISINOPRIL. [Concomitant]
     Active Substance: LISINOPRIL
     Dosage: 20 MG, 0.5-0-1-0, TABLETTEN
     Route: 048
  10. TORASEMID [Concomitant]
     Active Substance: TORSEMIDE
     Dosage: 10 MG, 1-0-0-0, TABLETTEN
     Route: 048
  11. METOPROLOL. [Concomitant]
     Active Substance: METOPROLOL
     Dosage: 47.5 MG, 1-0-1-0, TABLETTEN
     Route: 048

REACTIONS (9)
  - Hallucination [Unknown]
  - Memory impairment [Unknown]
  - Disturbance in attention [Unknown]
  - General physical health deterioration [Unknown]
  - Anxiety [Unknown]
  - Restlessness [Unknown]
  - Agitation [Unknown]
  - Substance-induced psychotic disorder [Unknown]
  - Confusional state [Unknown]
